FAERS Safety Report 9908601 (Version 1)
Quarter: 2014Q1

REPORT INFORMATION
  Report Type: Spontaneous
  Country: US (occurrence: None)
  Receive Date: 20140211
  Receipt Date: 20140211
  Transmission Date: 20141002
  Serious: Yes (Hospitalization, Other)
  Sender: FDA-Public Use
  Company Number: AUR-APL-2014-01375

PATIENT
  Age: 63 Year
  Sex: Male

DRUGS (3)
  1. SIMVASTATIN (SIMVASTATIN) [Suspect]
     Indication: PRODUCT USED FOR UNKNOWN INDICATION
  2. ATORVASTATIN (ATORVASTATIN) [Suspect]
     Indication: PRODUCT USED FOR UNKNOWN INDICATION
  3. GEMFIBROZIL (GEMFIBROZIL) [Concomitant]

REACTIONS (5)
  - Polymyalgia rheumatica [None]
  - Immune-mediated necrotising myopathy [None]
  - Weight decreased [None]
  - Fall [None]
  - Muscle atrophy [None]
